FAERS Safety Report 9558501 (Version 3)
Quarter: 2014Q2

REPORT INFORMATION
  Report Type: Spontaneous
  Country: US (occurrence: US)
  Receive Date: 20130926
  Receipt Date: 20140423
  Transmission Date: 20141212
  Serious: No
  Sender: FDA-Public Use
  Company Number: US-BIOGENIDEC-2013BI044004

PATIENT
  Age: 58 Year
  Sex: Female

DRUGS (15)
  1. TECFIDERA [Suspect]
     Indication: MULTIPLE SCLEROSIS
     Dates: start: 20130510
  2. TECFIDERA [Suspect]
     Indication: MULTIPLE SCLEROSIS
     Route: 048
  3. TECFIDERA [Suspect]
     Indication: MULTIPLE SCLEROSIS
     Route: 048
     Dates: start: 20140130
  4. ACIDOPHILUS EXTRA STRENGTH [Concomitant]
  5. BACLOFEN [Concomitant]
  6. COLACE [Concomitant]
  7. BENADRYL [Concomitant]
  8. DEXILANT [Concomitant]
  9. DULCOLAX ENEMA BOTTLE [Concomitant]
  10. ZYRTEC ALLERGY [Concomitant]
  11. METHENAMINE [Concomitant]
  12. NAPROXEN [Concomitant]
  13. OYSTER SHELL CALCIUM 500 +D [Concomitant]
  14. VITAMIN C [Concomitant]
  15. ZYPREXA [Concomitant]

REACTIONS (2)
  - Weight fluctuation [Not Recovered/Not Resolved]
  - Flushing [Unknown]
